FAERS Safety Report 12977081 (Version 1)
Quarter: 2016Q4

REPORT INFORMATION
  Report Type: Spontaneous
  Country: FR (occurrence: FR)
  Receive Date: 20161128
  Receipt Date: 20161128
  Transmission Date: 20170207
  Serious: Yes (Hospitalization, Other)
  Sender: FDA-Public Use
  Company Number: FR-ABBVIE-16K-056-1788054-00

PATIENT
  Age: 78 Year
  Sex: Female

DRUGS (4)
  1. DUODOPA [Suspect]
     Active Substance: CARBIDOPA\LEVODOPA
     Route: 050
     Dates: start: 20160330, end: 20160628
  2. DUODOPA [Suspect]
     Active Substance: CARBIDOPA\LEVODOPA
     Route: 050
     Dates: start: 20161026
  3. DUODOPA [Suspect]
     Active Substance: CARBIDOPA\LEVODOPA
     Route: 050
     Dates: start: 20160105, end: 20160330
  4. DUODOPA [Suspect]
     Active Substance: CARBIDOPA\LEVODOPA
     Indication: PARKINSON^S DISEASE
     Dosage: BOSTON TUBE: 2 CASSETTES/DAY CONTINUES ADMINISTRATION OVER 24H, CHANGE FOR ABBVIE 20FR
     Route: 050
     Dates: end: 20160105

REACTIONS (8)
  - General physical health deterioration [Unknown]
  - Fall [Unknown]
  - Device dislocation [Unknown]
  - Drug ineffective [Unknown]
  - Device issue [Recovered/Resolved]
  - Weight decreased [Unknown]
  - Parkinson^s disease [Unknown]
  - Device occlusion [Unknown]

NARRATIVE: CASE EVENT DATE: 20151209
